FAERS Safety Report 14038898 (Version 2)
Quarter: 2017Q4

REPORT INFORMATION
  Report Type: Report from Study
  Country: US (occurrence: US)
  Receive Date: 20171004
  Receipt Date: 20171025
  Transmission Date: 20180321
  Serious: Yes (Other)
  Sender: FDA-Public Use
  Company Number: US-AMGEN-USASL2017146133

PATIENT
  Age: 77 Year
  Sex: Female
  Weight: 89.8 kg

DRUGS (1)
  1. REPATHA [Suspect]
     Active Substance: EVOLOCUMAB
     Indication: HYPERCHOLESTEROLAEMIA
     Dosage: 140 MG, Q2WK
     Route: 058
     Dates: start: 201604, end: 20170812

REACTIONS (8)
  - Swelling face [Recovering/Resolving]
  - Rash macular [Recovering/Resolving]
  - Rash erythematous [Recovering/Resolving]
  - Back pain [Not Recovered/Not Resolved]
  - Pruritus [Recovering/Resolving]
  - Rhinorrhoea [Unknown]
  - Ear discomfort [Recovering/Resolving]
  - Tympanic membrane perforation [Recovering/Resolving]

NARRATIVE: CASE EVENT DATE: 2017
